FAERS Safety Report 24315977 (Version 1)
Quarter: 2024Q3

REPORT INFORMATION
  Report Type: Spontaneous
  Country: GB (occurrence: GB)
  Receive Date: 20240913
  Receipt Date: 20240913
  Transmission Date: 20241017
  Serious: Yes (Hospitalization)
  Sender: RANBAXY
  Company Number: GB-SUN PHARMACEUTICAL INDUSTRIES LTD-2024RR-467716

PATIENT
  Age: 73 Year
  Sex: Male
  Weight: 84 kg

DRUGS (12)
  1. CITALOPRAM [Suspect]
     Active Substance: CITALOPRAM\CITALOPRAM HYDROBROMIDE
     Indication: Ill-defined disorder
     Dosage: 20 MILLIGRAM
     Route: 048
     Dates: start: 20240816, end: 20240820
  2. ASPIRIN [Concomitant]
     Active Substance: ASPIRIN
     Indication: Ill-defined disorder
     Dosage: 1 TABLET
     Route: 048
     Dates: start: 20230816
  3. ATORVASTATIN [Concomitant]
     Active Substance: ATORVASTATIN
     Indication: Ill-defined disorder
     Dosage: AT NIGHT
     Route: 048
     Dates: start: 20230816
  4. BISOPROLOL [Concomitant]
     Active Substance: BISOPROLOL\BISOPROLOL FUMARATE
     Indication: Ill-defined disorder
     Dosage: 1 DOSAGE FORM
     Route: 048
     Dates: start: 20230904
  5. CO-DYDRAMOL [Concomitant]
     Active Substance: ACETAMINOPHEN\DIHYDROCODEINE
     Indication: Pain
     Dosage: 1-2, UP TO FOUR TIMES A DAY WHEN REQUIRED
     Route: 048
     Dates: start: 20230816
  6. LANSOPRAZOLE [Concomitant]
     Active Substance: LANSOPRAZOLE
     Indication: Ill-defined disorder
     Dosage: 1 DOSAGE FORM
     Route: 048
     Dates: start: 20230816
  7. SODIUM CHLORIDE [Concomitant]
     Active Substance: SODIUM CHLORIDE
     Indication: Ill-defined disorder
     Dosage: 5 MILLILITER
     Route: 048
     Dates: start: 20240816, end: 20240818
  8. TINZAPARIN [Concomitant]
     Active Substance: TINZAPARIN
     Indication: Ill-defined disorder
     Route: 065
     Dates: start: 20240817, end: 20240818
  9. GOSERELIN [Concomitant]
     Active Substance: GOSERELIN
     Indication: Ill-defined disorder
     Route: 065
     Dates: start: 20230223
  10. CARBAMAZEPINE [Concomitant]
     Active Substance: CARBAMAZEPINE
     Indication: Ill-defined disorder
     Dosage: 1 DOSAGE FORM
     Route: 048
     Dates: start: 20240820
  11. SERTRALINE [Concomitant]
     Active Substance: SERTRALINE HYDROCHLORIDE
     Indication: Ill-defined disorder
     Dosage: IN THE MORNING
     Route: 048
     Dates: start: 20240818
  12. TEGRETOL [Concomitant]
     Active Substance: CARBAMAZEPINE
     Indication: Ill-defined disorder
     Dosage: 1 DOSAGE FORM, BID
     Route: 048
     Dates: start: 20230816

REACTIONS (1)
  - Atrial conduction time prolongation [Recovered/Resolved]

NARRATIVE: CASE EVENT DATE: 20240820
